FAERS Safety Report 8471129-6 (Version None)
Quarter: 2012Q2

REPORT INFORMATION
  Report Type: 
  Country: None (occurrence: None)
  Receive Date: 20120620
  Receipt Date: 20120608
  Transmission Date: 20120825
  Serious: Yes (Hospitalization)
  Sender: FDA-Public Use
  Company Number: AUR-APL-2012-02660

PATIENT
  Age: 55 Year
  Sex: Female

DRUGS (4)
  1. ATORVASTATIN [Concomitant]
  2. CLOPIDEGREL [Suspect]
     Indication: MYOCARDIAL INFARCTION
     Dosage: 75 MG, ORAL
     Route: 048
  3. METOPROLOL TARTRATE [Concomitant]
  4. PANTOPRAZOLE [Concomitant]

REACTIONS (3)
  - PLATELET COUNT DECREASED [None]
  - HAEMOGLOBIN DECREASED [None]
  - ABDOMINAL WALL HAEMATOMA [None]
